FAERS Safety Report 5126844-9 (Version None)
Quarter: 2006Q4

REPORT INFORMATION
  Report Type: 
  Country: None (occurrence: None)
  Receive Date: 20061013
  Receipt Date: 20061001
  Transmission Date: 20070319
  Serious: Yes (Hospitalization)
  Sender: FDA-Public Use
  Company Number: US-AMGEN-STX195602

PATIENT
  Sex: Female

DRUGS (1)
  1. ENBREL [Suspect]
     Indication: RHEUMATOID ARTHRITIS
     Route: 058
     Dates: start: 20011101

REACTIONS (6)
  - CATARACT OPERATION [None]
  - FALL [None]
  - RENAL ARTERY STENT PLACEMENT [None]
  - SLEEP APNOEA SYNDROME [None]
  - THYROID DISORDER [None]
  - VITRECTOMY [None]
